FAERS Safety Report 8808480 (Version 2)
Quarter: 2012Q4

REPORT INFORMATION
  Report Type: 
  Country: US (occurrence: US)
  Receive Date: 20120926
  Receipt Date: 20121015
  Transmission Date: 20130627
  Serious: Yes (Hospitalization)
  Sender: FDA-Public Use
  Company Number: US-BAYER-2012-097549

PATIENT
  Age: 45 Year
  Sex: Female

DRUGS (6)
  1. YASMIN [Suspect]
     Dosage: UNK
     Dates: start: 200405, end: 20100917
  2. OCELLA [Suspect]
     Dosage: UNK
     Dates: start: 200405, end: 20100917
  3. YAZ [Suspect]
     Dosage: UNK
     Dates: start: 200405, end: 20100917
  4. IRON IN OTHER COMBINATIONS [Concomitant]
  5. PRAVASTATIN SODIUM [Concomitant]
     Dosage: 20 mg, UNK
  6. PRAVACHOL [Concomitant]

REACTIONS (7)
  - Deep vein thrombosis [Recovered/Resolved]
  - Injury [Recovered/Resolved]
  - Pain [Recovered/Resolved]
  - General physical health deterioration [Recovered/Resolved]
  - Emotional distress [None]
  - Anxiety [None]
  - Pain [None]
